FAERS Safety Report 9349650 (Version 2)
Quarter: 2013Q2

REPORT INFORMATION
  Report Type: Report from Study
  Country: US (occurrence: US)
  Receive Date: 20130614
  Receipt Date: 20130618
  Transmission Date: 20140414
  Serious: Yes (Other)
  Sender: FDA-Public Use
  Company Number: US-ABBOTT-13P-163-1100256-00

PATIENT
  Age: 56 Year
  Sex: Female
  Weight: 93.52 kg

DRUGS (6)
  1. SIMCOR 500/20 [Suspect]
     Indication: BLOOD CHOLESTEROL INCREASED
     Dosage: 500/20
  2. LISINOPRIL [Concomitant]
     Indication: PRODUCT USED FOR UNKNOWN INDICATION
  3. MVI [Concomitant]
     Indication: PRODUCT USED FOR UNKNOWN INDICATION
  4. VIT D WITH CALCIUM [Concomitant]
     Indication: PRODUCT USED FOR UNKNOWN INDICATION
  5. FISH OIL [Concomitant]
     Indication: PRODUCT USED FOR UNKNOWN INDICATION
  6. ASA [Concomitant]
     Indication: PRODUCT USED FOR UNKNOWN INDICATION

REACTIONS (5)
  - Blood calcium increased [Unknown]
  - Parathyroid gland operation [Recovered/Resolved]
  - Drug dispensing error [Unknown]
  - Incorrect dose administered [Unknown]
  - Paraesthesia [Unknown]
